FAERS Safety Report 5724369-0 (Version None)
Quarter: 2008Q2

REPORT INFORMATION
  Report Type: 
  Country: None (occurrence: None)
  Receive Date: 20080430
  Receipt Date: 20080422
  Transmission Date: 20081010
  Serious: Yes (Hospitalization)
  Sender: FDA-Public Use
  Company Number: FR-PFIZER INC-2008035185

PATIENT
  Age: 26 Year
  Sex: Male

DRUGS (4)
  1. CEFPODOXIME PROXETIL [Suspect]
     Indication: INFECTION
     Route: 048
     Dates: start: 20080201, end: 20080204
  2. SOLUPRED [Suspect]
     Indication: INFECTION
     Dosage: DAILY DOSE:60MG
     Route: 048
     Dates: start: 20080201, end: 20080202
  3. DOLIPRANE [Suspect]
     Dosage: FREQ:AS NEEDED
     Route: 048
  4. RHINOTROPHYL [Suspect]
     Route: 045

REACTIONS (1)
  - GRAND MAL CONVULSION [None]
